FAERS Safety Report 23305809 (Version 1)
Quarter: 2023Q4

REPORT INFORMATION
  Report Type: Spontaneous
  Country: GB (occurrence: GB)
  Receive Date: 20231218
  Receipt Date: 20231218
  Transmission Date: 20240110
  Serious: Yes (Other)
  Sender: FDA-Public Use
  Company Number: GB-GLAXOSMITHKLINE-GB2023EME173479

PATIENT

DRUGS (2)
  1. VENTOLIN [Suspect]
     Active Substance: ALBUTEROL SULFATE
     Indication: Product used for unknown indication
     Dosage: UNK
  2. BECLOMETHASONE\FORMOTEROL [Suspect]
     Active Substance: BECLOMETHASONE\FORMOTEROL
     Indication: Product used for unknown indication
     Dosage: UNK 200/6

REACTIONS (7)
  - Glossectomy [Unknown]
  - Atrial fibrillation [Unknown]
  - Sensation of foreign body [Unknown]
  - Sensation of foreign body [Unknown]
  - Stomatitis [Unknown]
  - Throat irritation [Unknown]
  - Tachycardia [Unknown]
